FAERS Safety Report 9056892 (Version 2)
Quarter: 2013Q1

REPORT INFORMATION
  Report Type: Report from Study
  Country: US (occurrence: US)
  Receive Date: 20130201
  Receipt Date: 20130221
  Transmission Date: 20140127
  Serious: Yes (Hospitalization)
  Sender: FDA-Public Use
  Company Number: US-ACTELION-A-NJ2013-78574

PATIENT
  Age: 71 Year
  Sex: Female

DRUGS (7)
  1. TRACLEER [Suspect]
     Indication: PULMONARY HYPERTENSION
     Dosage: 125 MG, BID
     Route: 048
     Dates: start: 2003
  2. TRACLEER [Suspect]
     Dosage: UNK
     Route: 048
  3. LIPITOR [Concomitant]
     Dosage: 80 MG, QD
  4. ADVAIR [Concomitant]
     Dosage: 500/50, BID
  5. LANTUS [Concomitant]
     Dosage: 10 UNITS, Q12HRS
  6. METOPROLOL [Concomitant]
     Dosage: 25 MG, Q8HRS
  7. ZOLOFT [Concomitant]
     Dosage: 50 MG, QD

REACTIONS (4)
  - Haemorrhagic transformation stroke [Recovering/Resolving]
  - Staphylococcal bacteraemia [Recovering/Resolving]
  - Septic embolus [Recovering/Resolving]
  - Pneumonia [Recovering/Resolving]
